FAERS Safety Report 8272402-7 (Version None)
Quarter: 2012Q2

REPORT INFORMATION
  Report Type: 
  Country: None (occurrence: None)
  Receive Date: 20120410
  Receipt Date: 20120328
  Transmission Date: 20120825
  Serious: Yes (Death)
  Sender: FDA-Public Use
  Company Number: US-CELGENEUS-163-20785-12030904

PATIENT
  Sex: Female

DRUGS (3)
  1. TEMOZOLOMIDE [Concomitant]
     Dosage: 140 MILLIGRAM
     Route: 048
     Dates: start: 20100820, end: 20101221
  2. THALOMID [Suspect]
     Indication: METASTATIC MALIGNANT MELANOMA
     Dosage: 200 MILLIGRAM
     Route: 048
     Dates: start: 20100820, end: 20101221
  3. LOMUSTINE [Concomitant]
     Dosage: 60 MILLIGRAM
     Route: 048
     Dates: start: 20100820, end: 20101221

REACTIONS (1)
  - METASTATIC MALIGNANT MELANOMA [None]
